FAERS Safety Report 18926703 (Version 1)
Quarter: 2021Q1

REPORT INFORMATION
  Report Type: Report from Study
  Country: US (occurrence: US)
  Receive Date: 20210223
  Receipt Date: 20210223
  Transmission Date: 20210420
  Serious: Yes (Other)
  Sender: FDA-Public Use
  Company Number: US-EMD SERONO-E2B_80034492

PATIENT
  Age: 50 Year
  Sex: Male

DRUGS (1)
  1. REBIF [Suspect]
     Active Substance: INTERFERON BETA-1A
     Indication: MULTIPLE SCLEROSIS
     Dosage: REBIDOSE
     Route: 058
     Dates: start: 20040110

REACTIONS (8)
  - Post procedural infection [Recovering/Resolving]
  - Influenza like illness [Unknown]
  - Neuritis [Unknown]
  - Cellulitis [Recovering/Resolving]
  - Injection site nodule [Unknown]
  - Balance disorder [Unknown]
  - Fatigue [Not Recovered/Not Resolved]
  - Osteoarthritis [Recovering/Resolving]

NARRATIVE: CASE EVENT DATE: 200401
